FAERS Safety Report 18649024 (Version 1)
Quarter: 2020Q4

REPORT INFORMATION
  Report Type: Spontaneous
  Country: US (occurrence: US)
  Receive Date: 20201221
  Receipt Date: 20201221
  Transmission Date: 20210114
  Serious: Yes (Hospitalization, Other)
  Sender: FDA-Public Use
  Company Number: None

PATIENT
  Age: 91 Year
  Sex: Male
  Weight: 57 kg

DRUGS (1)
  1. BACLOFEN (BACLOFEN 10MG TAB, UD) [Suspect]
     Active Substance: BACLOFEN
     Route: 048
     Dates: start: 20191008, end: 20191014

REACTIONS (4)
  - Decreased activity [None]
  - Delirium [None]
  - Hypophagia [None]
  - Confusional state [None]

NARRATIVE: CASE EVENT DATE: 20191014
